FAERS Safety Report 10575908 (Version 2)
Quarter: 2014Q4

REPORT INFORMATION
  Report Type: Spontaneous
  Country: US (occurrence: None)
  Receive Date: 20141107
  Receipt Date: 20141128
  Transmission Date: 20150529
  Serious: Yes (Other)
  Sender: FDA-Public Use
  Company Number: 2014-US-011448

PATIENT
  Age: 47 Year
  Sex: Female
  Weight: 45.4 kg

DRUGS (1)
  1. XYREM [Suspect]
     Active Substance: SODIUM OXYBATE
     Indication: NARCOLEPSY
     Route: 048
     Dates: start: 201110, end: 201110

REACTIONS (5)
  - Irritable bowel syndrome [None]
  - Coeliac disease [None]
  - Nausea [None]
  - Viral infection [None]
  - Diarrhoea [None]

NARRATIVE: CASE EVENT DATE: 2014
